APPROVED DRUG PRODUCT: REMERON SOLTAB
Active Ingredient: MIRTAZAPINE
Strength: 30MG
Dosage Form/Route: TABLET, ORALLY DISINTEGRATING;ORAL
Application: N021208 | Product #002 | TE Code: AB
Applicant: ORGANON USA LLC A SUB OF ORGANON AND CO
Approved: Jan 12, 2001 | RLD: Yes | RS: No | Type: RX